FAERS Safety Report 5767986-4 (Version None)
Quarter: 2008Q2

REPORT INFORMATION
  Report Type: 
  Country: None (occurrence: None)
  Receive Date: 20080612
  Receipt Date: 20080530
  Transmission Date: 20081010
  Serious: Yes (Hospitalization)
  Sender: FDA-Public Use
  Company Number: CN-ROCHE-567895

PATIENT
  Age: 58 Year
  Sex: Female

DRUGS (2)
  1. PEG-INTERFERON A-2A (RO 25-8310) [Suspect]
     Indication: HEPATITIS C
     Route: 058
     Dates: start: 20070601, end: 20080401
  2. RIBAVIRIN [Concomitant]
     Route: 048

REACTIONS (2)
  - ASCITES INFECTION [None]
  - HEPATIC CIRRHOSIS [None]
